FAERS Safety Report 21841640 (Version 1)
Quarter: 2023Q1

REPORT INFORMATION
  Report Type: Spontaneous
  Country: IR (occurrence: IR)
  Receive Date: 20230110
  Receipt Date: 20230110
  Transmission Date: 20230417
  Serious: Yes (Death, Life-Threatening, Hospitalization, Other)
  Sender: FDA-Public Use
  Company Number: IR-MLMSERVICE-20221230-4016548-1

PATIENT
  Age: 73 Year
  Sex: Male

DRUGS (11)
  1. ASPIRIN [Suspect]
     Active Substance: ASPIRIN
  2. ENOXAPARIN SODIUM [Suspect]
     Active Substance: ENOXAPARIN SODIUM
     Dates: start: 20210331, end: 20210405
  3. METHYLPREDNISOLONE [Concomitant]
     Active Substance: METHYLPREDNISOLONE
     Dates: start: 20210331
  4. REMDESIVIR [Concomitant]
     Active Substance: REMDESIVIR
     Dates: start: 20210331
  5. PANTOPRAZOLE [Concomitant]
     Active Substance: PANTOPRAZOLE
     Dates: start: 20210331
  6. MEROPENEM [Concomitant]
     Active Substance: MEROPENEM
     Dates: start: 20210331
  7. METFORMIN [Concomitant]
     Active Substance: METFORMIN HYDROCHLORIDE
     Indication: Diabetes mellitus
     Dosage: 500 MG
  8. LEVOFLOXACIN [Concomitant]
     Active Substance: LEVOFLOXACIN
     Dates: start: 20210331
  9. OXYGEN [Concomitant]
     Active Substance: OXYGEN
     Dates: start: 20210331
  10. LOSARTAN [Concomitant]
     Active Substance: LOSARTAN
     Indication: Hypertension
     Dosage: 25 MG
  11. METOPROLOL [Concomitant]
     Active Substance: METOPROLOL
     Indication: Hypertension
     Dosage: 25 MG

REACTIONS (5)
  - Kidney rupture [Fatal]
  - Haemoperitoneum [Fatal]
  - Acute kidney injury [Fatal]
  - Hypovolaemic shock [Fatal]
  - Renal haematoma [Fatal]

NARRATIVE: CASE EVENT DATE: 20210401
